FAERS Safety Report 18111660 (Version 7)
Quarter: 2021Q2

REPORT INFORMATION
  Report Type: Report from Study
  Country: US (occurrence: US)
  Receive Date: 20200804
  Receipt Date: 20210427
  Transmission Date: 20210717
  Serious: Yes (Life-Threatening, Hospitalization)
  Sender: FDA-Public Use
  Company Number: US-GILEAD-2020-0488706

PATIENT
  Age: 56 Year
  Sex: Male
  Weight: 107 kg

DRUGS (62)
  1. LITHIUM CARBONATE. [Concomitant]
     Active Substance: LITHIUM CARBONATE
     Dosage: 300,MG,TWICE DAILY
     Route: 048
     Dates: start: 19800601
  2. SUCRALFATE. [Concomitant]
     Active Substance: SUCRALFATE
     Dosage: 1,G,THREE TIMES DAILY
     Route: 048
     Dates: start: 20171107
  3. BENZTROPINE [BENZATROPINE] [Concomitant]
     Active Substance: BENZTROPINE
     Dosage: 1,MG,THREE TIMES DAILY
     Route: 048
     Dates: start: 20191125, end: 20200724
  4. HYDRALAZINE [Concomitant]
     Active Substance: HYDRALAZINE HYDROCHLORIDE
     Dosage: 50,MG,THREE TIMES DAILY
     Route: 048
     Dates: start: 20191205
  5. CEFEPIME [Concomitant]
     Active Substance: CEFEPIME HYDROCHLORIDE
     Dosage: 2,G,OTHER
     Route: 042
     Dates: start: 20200721, end: 20200727
  6. DECADRON [Concomitant]
     Active Substance: DEXAMETHASONE
     Dosage: 10,MG,ONCE
     Route: 042
     Dates: start: 20200725, end: 20200725
  7. DEPACON [Concomitant]
     Active Substance: VALPROATE SODIUM
     Dosage: 500,MG,OTHER
     Route: 042
     Dates: start: 20200730
  8. CALCIUM GLUCONATE. [Concomitant]
     Active Substance: CALCIUM GLUCONATE
     Dosage: 4.65,OTHER,DAILY
     Route: 042
     Dates: start: 20200731, end: 20200801
  9. AMLODIPINE [Concomitant]
     Active Substance: AMLODIPINE BESYLATE
     Dosage: 5,MG,DAILY
     Route: 048
     Dates: start: 19800101
  10. TRAZODONE [Concomitant]
     Active Substance: TRAZODONE HYDROCHLORIDE
     Dosage: 100,MG,AS NECESSARY
     Route: 048
     Dates: start: 20170801
  11. PRAZOSIN. [Concomitant]
     Active Substance: PRAZOSIN
     Dosage: 2,MG,DAILY
     Route: 048
     Dates: start: 20180601
  12. PROPRANOLOL HCL [Concomitant]
     Active Substance: PROPRANOLOL HYDROCHLORIDE
     Dosage: 40,MG,DAILY
     Route: 048
     Dates: start: 20190409
  13. TYLENOL [Concomitant]
     Active Substance: ACETAMINOPHEN
     Dosage: 650,MG,ONCE
     Route: 048
     Dates: start: 20200721, end: 20200721
  14. TYLENOL [Concomitant]
     Active Substance: ACETAMINOPHEN
     Dosage: 650,MG,ONCE
     Route: 048
     Dates: start: 20200722, end: 20200722
  15. DIFLUCAN [Concomitant]
     Active Substance: FLUCONAZOLE
     Dosage: 400,MG,DAILY
     Route: 048
     Dates: start: 20200723
  16. ROCEPHIN [Concomitant]
     Active Substance: CEFTRIAXONE SODIUM
     Dosage: 2,G,TWICE DAILY
     Route: 042
     Dates: start: 20201110
  17. MAGNESIUM SULFATE. [Concomitant]
     Active Substance: MAGNESIUM SULFATE
     Dosage: 2,G,AS NECESSARY
     Route: 050
     Dates: start: 20201111
  18. KTE?X19 [Suspect]
     Active Substance: BREXUCABTAGENE AUTOLEUCEL
     Indication: MANTLE CELL LYMPHOMA
     Dosage: 68
     Route: 042
     Dates: start: 20200720, end: 20200720
  19. KLONOPIN [Concomitant]
     Active Substance: CLONAZEPAM
     Dosage: 0.5,MG,TWICE DAILY
     Route: 048
     Dates: start: 20190409
  20. ONDANSETRON [Concomitant]
     Active Substance: ONDANSETRON
     Dosage: 4,MG,AS NECESSARY
     Route: 048
     Dates: start: 20191126
  21. HYDRALAZINE [Concomitant]
     Active Substance: HYDRALAZINE HYDROCHLORIDE
     Dosage: 50,MG,THREE TIMES DAILY
     Route: 048
     Dates: start: 20191205, end: 20200722
  22. FIORICET [Concomitant]
     Active Substance: ACETAMINOPHEN\BUTALBITAL\CAFFEINE
     Dosage: 300,MG,OTHER
     Route: 048
     Dates: start: 20200423
  23. ALLOPURINOL. [Concomitant]
     Active Substance: ALLOPURINOL
     Dosage: 300,MG,DAILY
     Route: 048
     Dates: start: 20200629
  24. SODIUM CHLORIDE 0.9% [Concomitant]
     Active Substance: SODIUM CHLORIDE
     Dosage: 1000,ML,ONCE
     Route: 042
     Dates: start: 20200807, end: 20200807
  25. SODIUM CHLORIDE 0.9% [Concomitant]
     Active Substance: SODIUM CHLORIDE
     Dosage: 1000,ML,OTHER
     Route: 042
     Dates: start: 20200809, end: 20200809
  26. FLUDARABINE [Suspect]
     Active Substance: FLUDARABINE PHOSPHATE
     Indication: BONE MARROW CONDITIONING REGIMEN
     Dosage: 1 DOSAGE FORM QD; 30
     Route: 042
     Dates: start: 20200715, end: 20200717
  27. RITALIN [Concomitant]
     Active Substance: METHYLPHENIDATE HYDROCHLORIDE
     Dosage: 20,MG,THREE TIMES DAILY
     Route: 048
     Dates: start: 20130101
  28. KLONOPIN [Concomitant]
     Active Substance: CLONAZEPAM
     Dosage: 1,MG,DAILY
     Route: 048
     Dates: start: 20200729
  29. VRAYLAR [Concomitant]
     Active Substance: CARIPRAZINE
     Dosage: 3,MG,DAILY
     Route: 048
     Dates: start: 20200127
  30. LASIX [Concomitant]
     Active Substance: FUROSEMIDE
     Dosage: 20,MG,AS NECESSARY
     Route: 048
     Dates: start: 20200408
  31. SODIUM CHLORIDE 0.9% [Concomitant]
     Active Substance: SODIUM CHLORIDE
     Dosage: 1000,ML,ONCE
     Route: 042
     Dates: start: 20200722, end: 20200722
  32. BACTRIM [Concomitant]
     Active Substance: SULFAMETHOXAZOLE\TRIMETHOPRIM
     Dosage: 1,OTHER,DAILY
     Route: 048
     Dates: start: 20200723
  33. ZYPREXA [Concomitant]
     Active Substance: OLANZAPINE
     Dosage: 5,MG,TWICE DAILY
     Route: 048
     Dates: start: 20200730
  34. DEXAMETHASONE. [Concomitant]
     Active Substance: DEXAMETHASONE
     Dosage: 6,MG,DAILY
     Route: 042
     Dates: start: 20201111
  35. LITHIUM CARBONATE. [Concomitant]
     Active Substance: LITHIUM CARBONATE
     Dosage: 450.MG,OTHER
     Route: 048
     Dates: start: 20190219
  36. ACYCLOVIR [ACICLOVIR] [Concomitant]
     Active Substance: ACYCLOVIR
     Dosage: 800,MG,TWICE DAILY
     Route: 048
     Dates: start: 20200518
  37. ZEMURON [Concomitant]
     Active Substance: ROCURONIUM BROMIDE
     Dosage: 50,MG,ONCE
     Route: 042
     Dates: start: 20200716, end: 20200716
  38. NYSTATIN. [Concomitant]
     Active Substance: NYSTATIN
     Dosage: 4?6,ML,FOUR TIMES DAILY
     Route: 048
     Dates: start: 20200717, end: 20200719
  39. LEVAQUIN [Concomitant]
     Active Substance: LEVOFLOXACIN
     Dosage: 500,MG,DAILY
     Route: 048
     Dates: start: 20200720, end: 20200720
  40. LEVAQUIN [Concomitant]
     Active Substance: LEVOFLOXACIN
     Dosage: 500,MG,OTHER
     Route: 042
     Dates: start: 20200729, end: 20200731
  41. TOCILIZUMAB. [Concomitant]
     Active Substance: TOCILIZUMAB
     Dosage: 800,MG,ONCE
     Route: 042
     Dates: start: 20200724, end: 20200724
  42. VALPROIC ACID. [Concomitant]
     Active Substance: VALPROIC ACID
     Dosage: 500,MG,THREE TIMES DAILY
     Route: 048
     Dates: start: 20200806
  43. CYCLOPHOSPHAMIDE. [Suspect]
     Active Substance: CYCLOPHOSPHAMIDE
     Indication: BONE MARROW CONDITIONING REGIMEN
     Dosage: 1 DOSAGE FORM QD; 500
     Route: 042
     Dates: start: 20200715, end: 20200717
  44. DECADRON [Concomitant]
     Active Substance: DEXAMETHASONE
     Dosage: 10,MG,OTHER
     Route: 042
     Dates: start: 20200725, end: 20200728
  45. BACTROBAN [Concomitant]
     Active Substance: MUPIROCIN\MUPIROCIN CALCIUM
     Dosage: 1,G,TWICE DAILY
     Route: 045
     Dates: start: 20200725, end: 20200730
  46. OFIRMEV [Concomitant]
     Active Substance: ACETAMINOPHEN
     Dosage: 1000,MG,ONCE
     Route: 042
     Dates: start: 20200731, end: 20200731
  47. VANCOMYCIN [Concomitant]
     Active Substance: VANCOMYCIN
     Dosage: 1500,MG,TWICE DAILY
     Route: 042
     Dates: start: 20201110
  48. AMLODIPINE [Concomitant]
     Active Substance: AMLODIPINE BESYLATE
     Dosage: 5,MG,DAILY
     Route: 048
     Dates: start: 19800101, end: 20200722
  49. CLARITIN [Concomitant]
     Active Substance: LORATADINE
     Dosage: 10,MG,AS NECESSARY
     Route: 048
     Dates: start: 201912
  50. BACLOFEN. [Concomitant]
     Active Substance: BACLOFEN
     Dosage: 5,MG,AS NECESSARY
     Route: 048
     Dates: start: 20200506
  51. IMODIUM [Concomitant]
     Active Substance: LOPERAMIDE HYDROCHLORIDE
     Dosage: 16,MG,DAILY
     Route: 048
     Dates: start: 20200715
  52. LOVENOX [Concomitant]
     Active Substance: ENOXAPARIN SODIUM
     Dosage: 40,MG,DAILY
     Route: 058
     Dates: start: 20200719, end: 20200721
  53. CEFEPIME [Concomitant]
     Active Substance: CEFEPIME HYDROCHLORIDE
     Dosage: 2,G,OTHER
     Route: 042
     Dates: start: 20200809
  54. TOCILIZUMAB. [Concomitant]
     Active Substance: TOCILIZUMAB
     Dosage: 800,MG,ONCE
     Route: 042
     Dates: start: 20200722, end: 20200722
  55. FLORINEF ACETATE [Concomitant]
     Active Substance: FLUDROCORTISONE ACETATE
     Dosage: 0.1,MG,DAILY
     Route: 048
     Dates: start: 20200809
  56. ALBUTEROL SULFATE. [Concomitant]
     Active Substance: ALBUTEROL SULFATE
     Dosage: 4,OTHER,AS NECESSARY
     Route: 050
     Dates: start: 20201110
  57. LORAZEPAN [Concomitant]
     Active Substance: LORAZEPAM
     Dosage: 1,MG,AS NECESSARY
     Route: 042
     Dates: start: 20201111
  58. BRIVARACETAM [Concomitant]
     Active Substance: BRIVARACETAM
     Dosage: 100,MG,DAILY
     Route: 048
     Dates: start: 20180819
  59. CYMBALTA [Concomitant]
     Active Substance: DULOXETINE HYDROCHLORIDE
     Dosage: 60,MG,TWICE DAILY
     Route: 048
     Dates: start: 20190918
  60. KEPPRA [Concomitant]
     Active Substance: LEVETIRACETAM
     Dosage: 500,MG,OTHER
     Route: 042
     Dates: start: 20200725, end: 20200730
  61. LEVOPHED [Concomitant]
     Active Substance: NOREPINEPHRINE BITARTRATE
     Dosage: 4,MG,OTHER
     Route: 042
     Dates: start: 20200728, end: 20200730
  62. SODIUM CHLORIDE. [Concomitant]
     Active Substance: SODIUM CHLORIDE
     Dosage: 1000,ML,OTHER
     Route: 042
     Dates: start: 20200804, end: 20200804

REACTIONS (5)
  - COVID-19 [Recovered/Resolved]
  - Cardiac arrest [Recovered/Resolved]
  - Encephalopathy [Recovered/Resolved]
  - Encephalopathy [Recovered/Resolved with Sequelae]
  - Thermal burn [Not Recovered/Not Resolved]

NARRATIVE: CASE EVENT DATE: 20200726
